FAERS Safety Report 6079017-X (Version None)
Quarter: 2009Q1

REPORT INFORMATION
  Report Type: 
  Country: None (occurrence: None)
  Receive Date: 20090216
  Receipt Date: 20090202
  Transmission Date: 20090719
  Serious: Yes (Hospitalization, Other)
  Sender: FDA-Public Use
  Company Number: US-ROCHE-552258

PATIENT
  Sex: Male
  Weight: 77.1 kg

DRUGS (2)
  1. ACCUTANE [Suspect]
     Route: 048
     Dates: start: 19910726, end: 19920114
  2. RITALIN [Concomitant]
     Dosage: DOSE HAS VARIED OVER THE YEARS.
     Dates: start: 19870226

REACTIONS (12)
  - ANXIETY [None]
  - CHEILITIS [None]
  - COLITIS [None]
  - DEPRESSION [None]
  - INCISIONAL HERNIA [None]
  - INFLAMMATORY BOWEL DISEASE [None]
  - INSOMNIA [None]
  - LIP DRY [None]
  - LIVER DISORDER [None]
  - POUCHITIS [None]
  - THROMBOCYTOPENIA [None]
  - XEROSIS [None]
